FAERS Safety Report 7605771-9 (Version None)
Quarter: 2011Q3

REPORT INFORMATION
  Report Type: 
  Country: None (occurrence: None)
  Receive Date: 20110713
  Receipt Date: 20110708
  Transmission Date: 20111222
  Serious: Yes (Death, Hospitalization)
  Sender: FDA-Public Use
  Company Number: DK-PFIZER INC-2011153645

PATIENT
  Age: 71 Year
  Sex: Female

DRUGS (2)
  1. SUNITINIB MALATE [Suspect]
     Indication: METASTATIC RENAL CELL CARCINOMA
     Dosage: 50 MG, 1X/DAY
     Dates: start: 20091118, end: 20100209
  2. FRAGMIN [Concomitant]
     Indication: ATRIAL FIBRILLATION

REACTIONS (1)
  - HAEMORRHAGE INTRACRANIAL [None]
